FAERS Safety Report 4773279-4 (Version None)
Quarter: 2005Q3

REPORT INFORMATION
  Report Type: 
  Country: None (occurrence: None)
  Receive Date: 20050920
  Receipt Date: 20050916
  Transmission Date: 20060218
  Serious: Yes (Death, Other)
  Sender: FDA-Public Use
  Company Number: JP-BOEHRINGER INGELHEIM PHARMACEUTICALS, INC.-2005-BP-16392NB

PATIENT
  Sex: Male

DRUGS (5)
  1. BI-SIFROL TABLETS [Suspect]
     Indication: PARKINSON'S DISEASE
     Route: 048
     Dates: start: 20050809
  2. NEODOPASTON [Concomitant]
     Indication: PARKINSON'S DISEASE
     Route: 048
     Dates: start: 20001002
  3. DOPS [Concomitant]
     Indication: PARKINSON'S DISEASE
     Route: 048
     Dates: start: 20001002
  4. FP [Concomitant]
     Indication: PARKINSON'S DISEASE
     Route: 048
     Dates: start: 20001002
  5. CABASER [Concomitant]
     Indication: PARKINSON'S DISEASE
     Route: 048
     Dates: start: 20001002

REACTIONS (4)
  - DELUSION [None]
  - DEPRESSION [None]
  - DROWNING [None]
  - HYPOKINESIA [None]
